FAERS Safety Report 24791956 (Version 2)
Quarter: 2025Q1

REPORT INFORMATION
  Report Type: Report from Study
  Country: FR (occurrence: FR)
  Receive Date: 20241231
  Receipt Date: 20250217
  Transmission Date: 20250408
  Serious: Yes (Hospitalization)
  Sender: BIOGEN
  Company Number: FR-BIOGEN-2024BI01295240

PATIENT
  Age: 20 Year
  Sex: Female
  Weight: 55.1 kg

DRUGS (13)
  1. OMAVELOXOLONE [Suspect]
     Active Substance: OMAVELOXOLONE
     Indication: Friedreich^s ataxia
     Dosage: PLANNED POSOLOGY: 150MG ONCE PER DAY (3 CAPSULES OF 50MG) PLANNED DURATION:3 MONTHS
     Route: 050
     Dates: start: 20240227, end: 20241220
  2. IDEBENONE [Concomitant]
     Active Substance: IDEBENONE
     Indication: Product used for unknown indication
     Route: 050
     Dates: start: 20170116
  3. BACLOFEN [Concomitant]
     Active Substance: BACLOFEN
     Indication: Product used for unknown indication
     Route: 050
     Dates: start: 20191014
  4. BACLOFEN [Concomitant]
     Active Substance: BACLOFEN
     Route: 050
  5. VENLAFAXINE [Concomitant]
     Active Substance: VENLAFAXINE HYDROCHLORIDE
     Indication: Product used for unknown indication
     Dosage: 1 TABLET IN THE MORNING DURING BREAKFAST
     Route: 050
  6. MELATONIN [Concomitant]
     Active Substance: MELATONIN
     Indication: Product used for unknown indication
     Dosage: 1 TABLET 1 HOUR BEFORE BEDTIME
     Route: 050
  7. LEVOTHYROXINE [Concomitant]
     Active Substance: LEVOTHYROXINE
     Indication: Product used for unknown indication
     Route: 050
  8. ATARAX [Concomitant]
     Active Substance: HYDROXYZINE HYDROCHLORIDE
     Indication: Product used for unknown indication
     Route: 050
  9. Spasfon [Concomitant]
     Indication: Product used for unknown indication
     Route: 050
  10. IDEBENONE [Concomitant]
     Active Substance: IDEBENONE
     Indication: Product used for unknown indication
     Route: 050
  11. ACETAMINOPHEN [Concomitant]
     Active Substance: ACETAMINOPHEN
     Indication: Pain
     Route: 050
  12. COVID VACCINE [Concomitant]
     Indication: COVID-19 prophylaxis
     Route: 050
  13. PANTOPRAZOLE [Concomitant]
     Active Substance: PANTOPRAZOLE
     Indication: Prophylaxis
     Dosage: UNTIL STOPPING ASPEGIC
     Route: 050

REACTIONS (2)
  - Viral myocarditis [Recovered/Resolved]
  - Myocarditis [Recovered/Resolved]

NARRATIVE: CASE EVENT DATE: 20241220
